FAERS Safety Report 25962366 (Version 3)
Quarter: 2025Q4

REPORT INFORMATION
  Report Type: Report from Study
  Country: CA (occurrence: CA)
  Receive Date: 20251027
  Receipt Date: 20251112
  Transmission Date: 20260118
  Serious: Yes (Death)
  Sender: ABBVIE
  Company Number: CA-ABBVIE-6518898

PATIENT
  Age: 81 Year
  Sex: Female

DRUGS (3)
  1. VENETOCLAX [Suspect]
     Active Substance: VENETOCLAX
     Indication: Acute myeloid leukaemia
     Dosage: FORM STRENGTH: 100 MG ?TAKE 100MG (1 TABLET) ONCE DAILY ON DAY 2, THEN TAKE
     Route: 048
     Dates: start: 20251006
  2. VENETOCLAX [Suspect]
     Active Substance: VENETOCLAX
     Indication: Acute myeloid leukaemia
     Dosage: FOR 14 DAYS 200MG (2 TABLETS) ONCE DAILY ON DAYS 3 - 14, THEN STOP?LAST DOSE TAKEN: OCT 2025, FOR...
     Route: 048
     Dates: end: 202510
  3. AZACITIDINE [Concomitant]
     Active Substance: AZACITIDINE
     Indication: Product used for unknown indication
     Dosage: FOR SEVEN DAYS
     Route: 058
     Dates: start: 20250708

REACTIONS (2)
  - Death [Fatal]
  - General physical health deterioration [Unknown]

NARRATIVE: CASE EVENT DATE: 20251022
